FAERS Safety Report 6386243-9 (Version None)
Quarter: 2009Q3

REPORT INFORMATION
  Report Type: 
  Country: None (occurrence: None)
  Receive Date: 20090929
  Receipt Date: 20090522
  Transmission Date: 20100115
  Serious: No
  Sender: FDA-Public Use
  Company Number: 283714

PATIENT
  Sex: Female

DRUGS (5)
  1. LUCENTIS [Suspect]
     Indication: MACULAR DEGENERATION
     Dosage: INTRAOCULAR
     Route: 031
     Dates: start: 20070401
  2. SYNTHROID [Concomitant]
  3. NORVASC [Concomitant]
  4. CHLORTHALIDONE [Concomitant]
  5. ZOCOR [Concomitant]

REACTIONS (1)
  - CONTUSION [None]
